FAERS Safety Report 4705192-2 (Version None)
Quarter: 2005Q2

REPORT INFORMATION
  Report Type: 
  Country: None (occurrence: None)
  Receive Date: 20050628
  Receipt Date: 20050616
  Transmission Date: 20051028
  Serious: Yes (Other)
  Sender: FDA-Public Use
  Company Number: 2005086103

PATIENT
  Sex: Male

DRUGS (3)
  1. CLINDAMYCIN PHOSPHATE [Suspect]
     Indication: SWEAT GLAND INFECTION
     Dosage: 900 MG (300 MG, TID), ORAL
     Route: 048
     Dates: start: 20050531, end: 20050603
  2. PHENYTOIN [Concomitant]
  3. CARBAMAZEPINE [Concomitant]

REACTIONS (2)
  - CONDITION AGGRAVATED [None]
  - PETIT MAL EPILEPSY [None]
